FAERS Safety Report 13088447 (Version 1)
Quarter: 2017Q1

REPORT INFORMATION
  Report Type: Spontaneous
  Country: US (occurrence: US)
  Receive Date: 20170104
  Receipt Date: 20170104
  Transmission Date: 20170428
  Serious: Yes (Death, Hospitalization)
  Sender: FDA-Public Use
  Company Number: None

PATIENT
  Age: 71 Year
  Sex: Male
  Weight: 67.05 kg

DRUGS (1)
  1. SIROLIMUS. [Suspect]
     Active Substance: SIROLIMUS
     Indication: ANGIOPATHY
     Route: 048
     Dates: start: 20160715, end: 20160913

REACTIONS (3)
  - Fatigue [None]
  - Cough [None]
  - Respiratory disorder [None]

NARRATIVE: CASE EVENT DATE: 20161016
